FAERS Safety Report 8213386-7 (Version None)
Quarter: 2012Q1

REPORT INFORMATION
  Report Type: 
  Country: None (occurrence: None)
  Receive Date: 20120315
  Receipt Date: 20120223
  Transmission Date: 20120608
  Serious: Yes (Hospitalization)
  Sender: FDA-Public Use
  Company Number: FR-ROCHE-1009760

PATIENT
  Age: 39 Year
  Sex: Female

DRUGS (10)
  1. CHOLECALCIFEROL [Concomitant]
     Dates: start: 20110406, end: 20110930
  2. VITAMIN D [Concomitant]
     Indication: VITAMIN D DEFICIENCY
     Dosage: 100000UI
     Route: 048
     Dates: start: 20110406, end: 20110930
  3. ZYPREXA [Concomitant]
     Indication: MENTAL DISORDER
  4. SURGESTONE [Concomitant]
     Indication: CONTRACEPTION
     Route: 048
     Dates: end: 20110930
  5. ACETAMINOPHEN [Concomitant]
     Indication: INFLUENZA LIKE ILLNESS
     Route: 048
     Dates: start: 20110322, end: 20110930
  6. TG4040 (MVA-HCV) [Suspect]
     Indication: HEPATITIS C
     Dosage: 107PFU
     Route: 058
     Dates: start: 20110419, end: 20110713
  7. DIPROSONE [Concomitant]
     Route: 061
     Dates: start: 20110518, end: 20110930
  8. PEGINTERFERON ALFA-2A [Suspect]
     Indication: HEPATITIS C
     Route: 058
     Dates: start: 20110322, end: 20110927
  9. ZYPREXA [Concomitant]
     Indication: SLEEP DISORDER
     Route: 048
     Dates: start: 20110801, end: 20110930
  10. COPEGUS [Suspect]
     Indication: HEPATITIS C
     Route: 048
     Dates: start: 20110322, end: 20110927

REACTIONS (2)
  - THROMBOCYTOPENIA [None]
  - PANCYTOPENIA [None]
